FAERS Safety Report 19108563 (Version 1)
Quarter: 2021Q2

REPORT INFORMATION
  Report Type: Spontaneous
  Country: GB (occurrence: GB)
  Receive Date: 20210408
  Receipt Date: 20210408
  Transmission Date: 20210717
  Serious: Yes (Other)
  Sender: FDA-Public Use
  Company Number: GB-ACCORD-221717

PATIENT
  Sex: Female

DRUGS (1)
  1. QUETIAPINE ACCORD [Suspect]
     Active Substance: QUETIAPINE
     Indication: PRODUCT USED FOR UNKNOWN INDICATION
     Dates: start: 20210311

REACTIONS (5)
  - Dehydration [Unknown]
  - Abdominal pain upper [Unknown]
  - Constipation [Unknown]
  - Haematochezia [Unknown]
  - Agitation [Unknown]
